FAERS Safety Report 14895166 (Version 4)
Quarter: 2019Q1

REPORT INFORMATION
  Report Type: Spontaneous
  Country: US (occurrence: US)
  Receive Date: 20180515
  Receipt Date: 20190218
  Transmission Date: 20190417
  Serious: No
  Sender: FDA-Public Use
  Company Number: US-PFIZER INC-2018006502

PATIENT
  Age: 47 Year
  Sex: Female

DRUGS (33)
  1. DOCETAXEL. [Suspect]
     Active Substance: DOCETAXEL
     Dosage: UNK, CYCLIC (4TH CYCLE) (EVERY 3 WEEKS, 6 CYCLES)
     Dates: start: 20140617, end: 20140617
  2. DOCETAXEL. [Suspect]
     Active Substance: DOCETAXEL
     Dosage: UNK, CYCLIC (6TH CYCLE) (EVERY 3 WEEKS, 6 CYCLES)
     Dates: start: 20140729, end: 20140729
  3. PARAPLATIN [Concomitant]
     Active Substance: CARBOPLATIN
     Dosage: UNK, CYCLIC (3RD CYCLE) (EVERY 3 WEEKS, 6 CYCLES)
     Dates: start: 20140527, end: 20140527
  4. MOXIFLOXACIN HCL [Concomitant]
     Active Substance: MOXIFLOXACIN
     Dosage: UNK
  5. DOCETAXEL. [Suspect]
     Active Substance: DOCETAXEL
     Dosage: UNK, CYCLIC (5TH CYCLE) (EVERY 3 WEEKS, 6 CYCLES)
     Dates: start: 20140709, end: 20140709
  6. DOCETAXEL ACCORD [Suspect]
     Active Substance: DOCETAXEL
     Dosage: UNK, CYCLIC (5TH CYCLE) (EVERY 3 WEEKS, 6 CYCLES)
     Dates: start: 20140709, end: 20140709
  7. PARAPLATIN [Concomitant]
     Active Substance: CARBOPLATIN
     Dosage: UNK, CYCLIC (6TH CYCLE) (EVERY 3 WEEKS, 6 CYCLES)
     Dates: start: 20140729, end: 20140729
  8. DOCETAXEL ACCORD [Suspect]
     Active Substance: DOCETAXEL
     Dosage: UNK, CYCLIC (2ND CYCLE) (EVERY 3 WEEKS, 6 CYCLES)
     Dates: start: 20140508, end: 20140508
  9. HERCEPTIN [Concomitant]
     Active Substance: TRASTUZUMAB
     Dosage: UNK, CYCLIC (5TH CYCLE) (EVERY 3 WEEKS, 6 CYCLES)
     Dates: start: 20140708, end: 20140708
  10. PARAPLATIN [Concomitant]
     Active Substance: CARBOPLATIN
     Dosage: UNK, CYCLIC (5TH CYCLE) (EVERY 3 WEEKS, 6 CYCLES)
     Dates: start: 20140708, end: 20140708
  11. DEXAMETHASONE. [Concomitant]
     Active Substance: DEXAMETHASONE
     Dosage: UNK
  12. DOCETAXEL. [Suspect]
     Active Substance: DOCETAXEL
     Indication: INTRADUCTAL PROLIFERATIVE BREAST LESION
     Dosage: UNK UNK, CYCLIC (1ST CYCLE) (EVERY 3 WEEKS, 06 CYCLES)
     Dates: start: 20140416, end: 20140416
  13. DOCETAXEL. [Suspect]
     Active Substance: DOCETAXEL
     Dosage: UNK, CYCLIC (2ND CYCLE) (EVERY 3 WEEKS, 6 CYCLES)
     Dates: start: 20140508, end: 20140508
  14. DOCETAXEL ACCORD [Suspect]
     Active Substance: DOCETAXEL
     Dosage: UNK, CYCLIC (3RD CYCLE) (EVERY 3 WEEKS, 6 CYCLES)
     Dates: start: 20140527, end: 20140527
  15. HERCEPTIN [Concomitant]
     Active Substance: TRASTUZUMAB
     Dosage: UNK, CYCLIC (3RD CYCLE) (EVERY 3 WEEKS, 6 CYCLES)
     Dates: start: 20140527, end: 20140527
  16. PARAPLATIN [Concomitant]
     Active Substance: CARBOPLATIN
     Indication: CHEMOTHERAPY
     Dosage: UNK UNK, CYCLIC (1ST CYCLE) (EVERY 3 WEEKS, 06 CYCLES)
     Dates: start: 20140416, end: 20140416
  17. TAXOL [Concomitant]
     Active Substance: PACLITAXEL
     Indication: CHEMOTHERAPY
     Dosage: UNK
  18. NEULASTA [Concomitant]
     Active Substance: PEGFILGRASTIM
     Dosage: UNK
  19. DOCETAXEL ACCORD [Suspect]
     Active Substance: DOCETAXEL
     Indication: INTRADUCTAL PROLIFERATIVE BREAST LESION
     Dosage: UNK UNK, CYCLIC (1ST CYCLE) (EVERY 3 WEEKS, 06 CYCLES)
     Dates: start: 20140416, end: 20140416
  20. HERCEPTIN [Concomitant]
     Active Substance: TRASTUZUMAB
     Dosage: UNK, CYCLIC (2ND CYCLE) (EVERY 3 WEEKS, 6 CYCLES)
     Dates: start: 20140507, end: 20140507
  21. HERCEPTIN [Concomitant]
     Active Substance: TRASTUZUMAB
     Dosage: UNK, CYCLIC (6TH CYCLE) (EVERY 3 WEEKS, 6 CYCLES)
     Dates: start: 20140729, end: 20140729
  22. PEPCID [Concomitant]
     Active Substance: FAMOTIDINE
     Dosage: UNK
     Route: 042
  23. HERCEPTIN [Concomitant]
     Active Substance: TRASTUZUMAB
     Indication: CHEMOTHERAPY
     Dosage: UNK UNK, CYCLIC (1ST CYCLE) (EVERY 3 WEEKS, 06 CYCLES)
     Dates: start: 20140416, end: 20140416
  24. EMEND [Concomitant]
     Active Substance: APREPITANT
     Dosage: UNK
     Route: 042
  25. DOCETAXEL. [Suspect]
     Active Substance: DOCETAXEL
     Dosage: UNK, CYCLIC (3RD CYCLE) (EVERY 3 WEEKS, 6 CYCLES)
     Dates: start: 20140527, end: 20140527
  26. PARAPLATIN [Concomitant]
     Active Substance: CARBOPLATIN
     Dosage: UNK, CYCLIC (4TH CYCLE) (EVERY 3 WEEKS, 6 CYCLES)
     Dates: start: 20140617, end: 20140617
  27. ZOFRAN [Concomitant]
     Active Substance: ONDANSETRON HYDROCHLORIDE
     Dosage: UNK
  28. DOCETAXEL ACCORD [Suspect]
     Active Substance: DOCETAXEL
     Dosage: UNK, CYCLIC (4TH CYCLE) (EVERY 3 WEEKS, 6 CYCLES)
     Dates: start: 20140617, end: 20140617
  29. DOCETAXEL ACCORD [Suspect]
     Active Substance: DOCETAXEL
     Dosage: UNK, CYCLIC (6TH CYCLE) (EVERY 3 WEEKS, 6 CYCLES)
     Dates: start: 20140729, end: 20140729
  30. HERCEPTIN [Concomitant]
     Active Substance: TRASTUZUMAB
     Dosage: UNK, CYCLIC (4TH CYCLE) (EVERY 3 WEEKS, 6 CYCLES)
     Dates: start: 20140617, end: 20140617
  31. PARAPLATIN [Concomitant]
     Active Substance: CARBOPLATIN
     Dosage: UNK, CYCLIC (2ND CYCLE) (EVERY 3 WEEKS, 6 CYCLES)
     Dates: start: 20140507, end: 20140507
  32. ONDANSETRON HCL [Concomitant]
     Active Substance: ONDANSETRON HYDROCHLORIDE
     Dosage: UNK
  33. ALOXI [Concomitant]
     Active Substance: PALONOSETRON HYDROCHLORIDE
     Dosage: UNK

REACTIONS (5)
  - Hair colour changes [Not Recovered/Not Resolved]
  - Hair texture abnormal [Not Recovered/Not Resolved]
  - Alopecia [Not Recovered/Not Resolved]
  - Hair disorder [Not Recovered/Not Resolved]
  - Madarosis [Not Recovered/Not Resolved]

NARRATIVE: CASE EVENT DATE: 20140507
